FAERS Safety Report 26067560 (Version 1)
Quarter: 2025Q4

REPORT INFORMATION
  Report Type: Spontaneous
  Country: US (occurrence: US)
  Receive Date: 20251120
  Receipt Date: 20251120
  Transmission Date: 20260118
  Serious: No
  Sender: ELI LILLY AND COMPANY
  Company Number: US-ELI_LILLY_AND_COMPANY-US202511020403

PATIENT
  Age: 49 Year
  Sex: Female

DRUGS (2)
  1. ZEPBOUND [Suspect]
     Active Substance: TIRZEPATIDE
     Indication: Weight control
     Dosage: UNK UNK, UNKNOWN
     Route: 065
     Dates: start: 20250501
  2. ZEPBOUND [Suspect]
     Active Substance: TIRZEPATIDE
     Dosage: 15 MG, UNKNOWN
     Route: 065

REACTIONS (1)
  - Drug ineffective [Unknown]
